FAERS Safety Report 7769568-1 (Version None)
Quarter: 2011Q3

REPORT INFORMATION
  Report Type: 
  Country: None (occurrence: None)
  Receive Date: 20110922
  Receipt Date: 20110301
  Transmission Date: 20111222
  Serious: No
  Sender: FDA-Public Use
  Company Number: US-ASTRAZENECA-2011SE20930

PATIENT
  Age: 379 Month
  Sex: Female
  Weight: 101.6 kg

DRUGS (5)
  1. CELEXA [Concomitant]
     Dosage: 20 MG DECREASE TO 10 MG QID THEN STOP
     Dates: start: 20050101
  2. REMERON [Concomitant]
     Dates: start: 20050614
  3. WELLBUTRIN [Concomitant]
     Dates: start: 20050101
  4. SEROQUEL [Suspect]
     Route: 048
     Dates: start: 20050614
  5. CLONAZEPAM [Concomitant]
     Dates: start: 20050101

REACTIONS (5)
  - PARAESTHESIA [None]
  - OBESITY [None]
  - WEIGHT INCREASED [None]
  - TYPE 2 DIABETES MELLITUS [None]
  - DIABETES MELLITUS INADEQUATE CONTROL [None]
